FAERS Safety Report 10165063 (Version 1)
Quarter: 2014Q2

REPORT INFORMATION
  Report Type: Spontaneous
  Country: US (occurrence: US)
  Receive Date: 20140510
  Receipt Date: 20140510
  Transmission Date: 20141212
  Serious: No
  Sender: FDA-Public Use
  Company Number: US-BRISTOL-MYERS SQUIBB COMPANY-19698414

PATIENT
  Age: 36 Year
  Sex: Female

DRUGS (2)
  1. BYDUREON [Suspect]
     Route: 058
     Dates: start: 2013
  2. METFORMIN [Concomitant]

REACTIONS (3)
  - Injection site nodule [Not Recovered/Not Resolved]
  - Injection site pruritus [Not Recovered/Not Resolved]
  - Injection site erythema [Not Recovered/Not Resolved]
